FAERS Safety Report 6631133-7 (Version None)
Quarter: 2010Q1

REPORT INFORMATION
  Report Type: 
  Country: None (occurrence: None)
  Receive Date: 20100309
  Receipt Date: 20100222
  Transmission Date: 20100710
  Serious: Yes (Hospitalization)
  Sender: FDA-Public Use
  Company Number: 238675K09USA

PATIENT
  Age: 46 Year
  Sex: Female

DRUGS (2)
  1. REBIF [Suspect]
     Indication: MULTIPLE SCLEROSIS
     Dosage: 44 MCG, 3 IN 1 WEEKS, SUBCUTANEOUS
     Route: 058
     Dates: start: 20070803
  2. ZANTAC (RANITIDINE HYDROCLORIDE)` [Concomitant]

REACTIONS (3)
  - BACK PAIN [None]
  - GALLBLADDER DISORDER [None]
  - PAIN IN EXTREMITY [None]
